FAERS Safety Report 5333070-7 (Version None)
Quarter: 2007Q1

REPORT INFORMATION
  Report Type: 
  Country: None (occurrence: None)
  Receive Date: 20070306
  Receipt Date: 20060912
  Transmission Date: 20070707
  Serious: Yes (Hospitalization, Disabling)
  Sender: FDA-Public Use
  Company Number: A03200605699

PATIENT
  Age: 73 Year
  Sex: Female

DRUGS (1)
  1. PLAVIX [Suspect]
     Dosage: ORAL; A FEW WEEKS
     Route: 048

REACTIONS (3)
  - AMNESIA [None]
  - SPEECH DISORDER [None]
  - SUBDURAL HAEMATOMA [None]
